FAERS Safety Report 13000014 (Version 4)
Quarter: 2018Q1

REPORT INFORMATION
  Report Type: Report from Study
  Country: JP (occurrence: JP)
  Receive Date: 20161205
  Receipt Date: 20180131
  Transmission Date: 20180508
  Serious: Yes (Other)
  Sender: FDA-Public Use
  Company Number: JP-AMGEN-JPNSP2016171080

PATIENT
  Age: 64 Year
  Sex: Male

DRUGS (46)
  1. CARFILZOMIB [Suspect]
     Active Substance: CARFILZOMIB
     Dosage: 36 MG, UNK
     Route: 042
     Dates: start: 20170606, end: 20170607
  2. LENALIDOMIDE [Concomitant]
     Active Substance: LENALIDOMIDE
     Dosage: 5 MG, UNK
     Dates: start: 20170620, end: 20170710
  3. DEXAMETHASONE. [Concomitant]
     Active Substance: DEXAMETHASONE
     Dosage: 16.5 MG, UNK
     Dates: start: 20161115, end: 20161115
  4. DEXAMETHASONE. [Concomitant]
     Active Substance: DEXAMETHASONE
     Dosage: 33 MG, UNK
     Dates: start: 20170221, end: 20170221
  5. DEXAMETHASONE. [Concomitant]
     Active Substance: DEXAMETHASONE
     Dosage: 33 MG, UNK
     Dates: start: 20170425, end: 20170425
  6. DEXAMETHASONE. [Concomitant]
     Active Substance: DEXAMETHASONE
     Dosage: 33 MG, UNK
     Dates: start: 20170627, end: 20170627
  7. CARFILZOMIB [Suspect]
     Active Substance: CARFILZOMIB
     Indication: PLASMA CELL MYELOMA
     Dosage: 27 MG, UNK
     Route: 041
     Dates: start: 20161108, end: 20161109
  8. CARFILZOMIB [Suspect]
     Active Substance: CARFILZOMIB
     Dosage: 36 MG, UNK
     Route: 041
     Dates: start: 20170328, end: 20170328
  9. CARFILZOMIB [Suspect]
     Active Substance: CARFILZOMIB
     Dosage: 36 MG, UNK
     Route: 042
     Dates: start: 20170530, end: 20170531
  10. LENALIDOMIDE [Concomitant]
     Active Substance: LENALIDOMIDE
     Dosage: 5 MG, UNK
     Dates: start: 20170221, end: 20170313
  11. CARFILZOMIB [Suspect]
     Active Substance: CARFILZOMIB
     Dosage: 36 MG, UNK
     Route: 041
     Dates: start: 20170228, end: 20170301
  12. CARFILZOMIB [Suspect]
     Active Substance: CARFILZOMIB
     Dosage: 36 MG, UNK
     Route: 042
     Dates: start: 20170627, end: 20170628
  13. LENALIDOMIDE [Concomitant]
     Active Substance: LENALIDOMIDE
     Dosage: 5 MG, UNK
     Dates: start: 20170321, end: 20170410
  14. CARFILZOMIB [Suspect]
     Active Substance: CARFILZOMIB
     Dosage: 36 MG, UNK
     Route: 042
     Dates: start: 20170620, end: 20170621
  15. DEXAMETHASONE. [Concomitant]
     Active Substance: DEXAMETHASONE
     Dosage: 33 MG, UNK
     Dates: start: 20170321, end: 20170321
  16. DEXAMETHASONE. [Concomitant]
     Active Substance: DEXAMETHASONE
     Dosage: 33 MG, UNK
     Dates: start: 20170328, end: 20170328
  17. DEXAMETHASONE. [Concomitant]
     Active Substance: DEXAMETHASONE
     Dosage: 73 MG, UNK
     Dates: start: 20170404, end: 20170404
  18. DEXAMETHASONE. [Concomitant]
     Active Substance: DEXAMETHASONE
     Dosage: 33 MG, UNK
     Dates: start: 20170418, end: 20170418
  19. DEXAMETHASONE. [Concomitant]
     Active Substance: DEXAMETHASONE
     Dosage: 33 MG, UNK
     Dates: start: 20170502, end: 20170502
  20. DEXAMETHASONE. [Concomitant]
     Active Substance: DEXAMETHASONE
     Dosage: 33 MG, UNK
     Dates: start: 20170530, end: 20170530
  21. CARFILZOMIB [Suspect]
     Active Substance: CARFILZOMIB
     Dosage: 36 MG, UNK
     Route: 041
     Dates: start: 20170307, end: 20170308
  22. CARFILZOMIB [Suspect]
     Active Substance: CARFILZOMIB
     Dosage: 36 MG, UNK
     Route: 041
     Dates: start: 20170321, end: 20170322
  23. CARFILZOMIB [Suspect]
     Active Substance: CARFILZOMIB
     Dosage: 36 MG, UNK
     Route: 041
     Dates: start: 20170404, end: 20170405
  24. CARFILZOMIB [Suspect]
     Active Substance: CARFILZOMIB
     Dosage: 36 MG, UNK
     Route: 042
     Dates: start: 20170523, end: 20170524
  25. LENALIDOMIDE [Concomitant]
     Active Substance: LENALIDOMIDE
     Dosage: 5 MG, UNK
     Dates: start: 20170523, end: 20170612
  26. DEXAMETHASONE. [Concomitant]
     Active Substance: DEXAMETHASONE
     Dosage: 16.5 MG, UNK
     Dates: start: 20161108, end: 20161108
  27. DEXAMETHASONE. [Concomitant]
     Active Substance: DEXAMETHASONE
     Dosage: 33 MG, UNK
     Dates: start: 20170523, end: 20170523
  28. VICCLOX [Concomitant]
     Active Substance: ACYCLOVIR SODIUM
     Dosage: UNK
     Dates: start: 20170606
  29. CARFILZOMIB [Suspect]
     Active Substance: CARFILZOMIB
     Dosage: 36 MG, UNK
     Route: 041
     Dates: start: 20170221, end: 20170222
  30. CARFILZOMIB [Suspect]
     Active Substance: CARFILZOMIB
     Dosage: 36 MG, UNK
     Route: 042
     Dates: start: 20170704, end: 20170705
  31. LENALIDOMIDE [Concomitant]
     Active Substance: LENALIDOMIDE
     Dosage: 5 MG, UNK
     Dates: start: 20170418, end: 20170508
  32. DEXAMETHASONE. [Concomitant]
     Active Substance: DEXAMETHASONE
     Dosage: 33 MG, UNK
     Dates: start: 20170228, end: 20170228
  33. DEXAMETHASONE. [Concomitant]
     Active Substance: DEXAMETHASONE
     Dosage: 40 MG, UNK
     Dates: start: 20170308, end: 20170308
  34. CARFILZOMIB [Suspect]
     Active Substance: CARFILZOMIB
     Dosage: 36 MG, UNK
     Route: 041
     Dates: start: 20161115, end: 20161116
  35. CARFILZOMIB [Suspect]
     Active Substance: CARFILZOMIB
     Dosage: 36 MG, UNK
     Route: 041
     Dates: start: 20161122, end: 20161123
  36. CARFILZOMIB [Suspect]
     Active Substance: CARFILZOMIB
     Dosage: 36 MG, UNK
     Route: 041
     Dates: start: 20170425, end: 20170426
  37. CARFILZOMIB [Suspect]
     Active Substance: CARFILZOMIB
     Dosage: 36 MG, UNK
     Route: 042
     Dates: start: 20170502, end: 20170503
  38. LENALIDOMIDE [Concomitant]
     Active Substance: LENALIDOMIDE
     Dosage: 20 MG, UNK
     Dates: start: 20161108, end: 20161123
  39. DEXAMETHASONE. [Concomitant]
     Active Substance: DEXAMETHASONE
     Dosage: 20 MG, UNK
     Dates: start: 20161129, end: 20161129
  40. DEXAMETHASONE. [Concomitant]
     Active Substance: DEXAMETHASONE
     Dosage: 33 MG, UNK
     Dates: start: 20170307, end: 20170307
  41. DEXAMETHASONE. [Concomitant]
     Active Substance: DEXAMETHASONE
     Dosage: 73 MG, UNK
     Dates: start: 20170704, end: 20170704
  42. CARFILZOMIB [Suspect]
     Active Substance: CARFILZOMIB
     Dosage: 36 MG, UNK
     Route: 041
     Dates: start: 20170418, end: 20170419
  43. DEXAMETHASONE. [Concomitant]
     Active Substance: DEXAMETHASONE
     Dosage: 16.5 MG, UNK
     Dates: start: 20161122, end: 20161122
  44. DEXAMETHASONE. [Concomitant]
     Active Substance: DEXAMETHASONE
     Dosage: 40 MG, UNK
     Dates: start: 20170506, end: 20170506
  45. DEXAMETHASONE. [Concomitant]
     Active Substance: DEXAMETHASONE
     Dosage: 73 MG, UNK
     Dates: start: 20170606, end: 20170606
  46. DEXAMETHASONE. [Concomitant]
     Active Substance: DEXAMETHASONE
     Dosage: 33 MG, UNK
     Dates: start: 20170620, end: 20170620

REACTIONS (2)
  - Pyrexia [Recovered/Resolved]
  - Pancytopenia [Recovered/Resolved]

NARRATIVE: CASE EVENT DATE: 20161124
